FAERS Safety Report 4350943-2 (Version None)
Quarter: 2004Q2

REPORT INFORMATION
  Report Type: 
  Country: None (occurrence: None)
  Receive Date: 20040430
  Receipt Date: 20040419
  Transmission Date: 20050107
  Serious: Yes (Hospitalization)
  Sender: FDA-Public Use
  Company Number: GB-GLAXOSMITHKLINE-B0330411A

PATIENT

DRUGS (2)
  1. PAROXETINE HCL [Suspect]
     Dosage: 40MG PER DAY
  2. OLANZAPINE [Concomitant]
     Dosage: 10MG PER DAY

REACTIONS (8)
  - DRUG EXPOSURE DURING PREGNANCY [None]
  - DRUG WITHDRAWAL SYNDROME [None]
  - FEELING JITTERY [None]
  - GASTRIC DISORDER [None]
  - HYPERTONIA [None]
  - HYPOGLYCAEMIA [None]
  - OPISTHOTONUS [None]
  - SALIVARY HYPERSECRETION [None]
